FAERS Safety Report 5933615-X (Version None)
Quarter: 2008Q4

REPORT INFORMATION
  Report Type: 
  Country: None (occurrence: None)
  Receive Date: 20081010
  Receipt Date: 20080528
  Transmission Date: 20090506
  Serious: Yes (Disabling, Other)
  Sender: FDA-Public Use
  Company Number: 2008US001477

PATIENT
  Age: 41 Year
  Sex: Male

DRUGS (8)
  1. AMBISOME [Suspect]
     Indication: MENINGITIS
     Dosage: UID/QD, IV NOS
     Route: 042
  2. TRUVADA [Suspect]
     Indication: ACQUIRED IMMUNODEFICIENCY SYNDROME
     Dosage: 1 DF, QOD, ORAL
     Route: 048
     Dates: start: 20080401, end: 20080508
  3. FLUCYTOSINE (FLUCYTOSINE) [Concomitant]
  4. ATAZANAVIR SULFATE [Concomitant]
  5. RITONAVIR (RITONAVIR) [Concomitant]
  6. AZITHROMYCIN [Concomitant]
  7. DAPSONE [Concomitant]
  8. VALGANCICLOVIR HCL [Concomitant]

REACTIONS (2)
  - BLOOD CREATININE INCREASED [None]
  - RENAL FAILURE ACUTE [None]
